FAERS Safety Report 8626040-4 (Version None)
Quarter: 2012Q3

REPORT INFORMATION
  Report Type: 
  Country: None (occurrence: None)
  Receive Date: 20120827
  Receipt Date: 20120814
  Transmission Date: 20120928
  Serious: Yes (Hospitalization, Other)
  Sender: FDA-Public Use
  Company Number: JP-VERTEX PHARMACEUTICAL INC.-AE-2012-005160

PATIENT
  Age: 63 Year
  Sex: Male

DRUGS (8)
  1. REBETOL [Concomitant]
     Indication: HEPATITIS C
     Dosage: 600 MG, UNK
     Route: 048
     Dates: start: 20120224, end: 20120315
  2. REBETOL [Concomitant]
     Dosage: 400 MG, UNK
     Route: 048
     Dates: start: 20120316, end: 20120322
  3. VX-950 [Suspect]
     Indication: HEPATITIS C
     Dosage: 2250 MG, UNK
     Route: 048
     Dates: start: 20120224, end: 20120322
  4. VX-950 [Suspect]
     Dosage: 1500 MG, UNK
     Route: 048
     Dates: start: 20120323, end: 20120329
  5. PEG-INTRON [Concomitant]
     Indication: HEPATITIS C
     Dosage: 1.5 UNK, UNK
     Route: 058
     Dates: start: 20120224, end: 20120322
  6. PEG-INTRON [Concomitant]
     Dosage: 0.72 UNK, UNK
     Route: 058
     Dates: start: 20120323
  7. ACETAMINOPHEN [Concomitant]
     Route: 048
     Dates: start: 20120229, end: 20120302
  8. REBETOL [Concomitant]
     Dosage: 200 MG, UNK
     Route: 048
     Dates: start: 20120323, end: 20120329

REACTIONS (5)
  - DECREASED APPETITE [None]
  - NAUSEA [None]
  - DEPRESSION [None]
  - MALAISE [None]
  - ANAEMIA [None]
